FAERS Safety Report 9216879 (Version 1)
Quarter: 2013Q2

REPORT INFORMATION
  Report Type: Spontaneous
  Country: US (occurrence: US)
  Receive Date: 20130408
  Receipt Date: 20130408
  Transmission Date: 20140414
  Serious: Yes (Other)
  Sender: FDA-Public Use
  Company Number: US-PFIZER INC-2013109911

PATIENT
  Sex: Female
  Weight: 76.19 kg

DRUGS (4)
  1. CHANTIX [Suspect]
     Indication: SMOKING CESSATION THERAPY
     Dosage: UNK
  2. CHANTIX [Suspect]
     Dosage: UNK
     Dates: start: 201303, end: 2013
  3. XANAX [Suspect]
     Indication: SLEEP DISORDER
     Dosage: UNK, 3X/DAY
  4. XANAX [Suspect]
     Dosage: UNK, 1X/DAY

REACTIONS (5)
  - Suicidal ideation [Unknown]
  - Nightmare [Unknown]
  - Anxiety [Unknown]
  - Eye disorder [Unknown]
  - Off label use [Unknown]
